FAERS Safety Report 12851613 (Version 1)
Quarter: 2016Q4

REPORT INFORMATION
  Report Type: Spontaneous
  Country: US (occurrence: US)
  Receive Date: 20161014
  Receipt Date: 20161014
  Transmission Date: 20170207
  Serious: Yes (Other)
  Sender: FDA-Public Use
  Company Number: None

PATIENT
  Age: 64 Year
  Sex: Female
  Weight: 105.75 kg

DRUGS (1)
  1. LEVEMIR [Suspect]
     Active Substance: INSULIN DETEMIR
     Indication: DIABETES MELLITUS
     Dosage: 70 IG/KG AT BED TIME SUBCUTANEOUS
     Route: 058
     Dates: start: 20161011, end: 20161013

REACTIONS (2)
  - Injection site urticaria [None]
  - Injection site haematoma [None]

NARRATIVE: CASE EVENT DATE: 20161013
